FAERS Safety Report 8594019-7 (Version None)
Quarter: 2012Q3

REPORT INFORMATION
  Report Type: 
  Country: None (occurrence: None)
  Receive Date: 20120814
  Receipt Date: 20120807
  Transmission Date: 20120928
  Serious: No
  Sender: FDA-Public Use
  Company Number: US-ASTRAZENECA-2012SE47846

PATIENT
  Age: 78 Year
  Sex: Female

DRUGS (2)
  1. TOPROL-XL [Suspect]
     Route: 048
  2. BENICAR [Concomitant]

REACTIONS (4)
  - DIARRHOEA [None]
  - BLOOD PRESSURE INCREASED [None]
  - OEDEMA PERIPHERAL [None]
  - FLATULENCE [None]
